FAERS Safety Report 10188157 (Version 1)
Quarter: 2014Q2

REPORT INFORMATION
  Report Type: Spontaneous
  Country: US (occurrence: None)
  Receive Date: 20140521
  Receipt Date: 20140521
  Transmission Date: 20141212
  Serious: No
  Sender: FDA-Public Use
  Company Number: None

PATIENT
  Age: 74 Year
  Sex: Male
  Weight: 51.26 kg

DRUGS (1)
  1. LIDOCAINE / EPINEPHRINE [Suspect]
     Indication: ANAESTHESIA
     Dosage: LOCAL INJECTION FOR ANESTHESIA
     Dates: start: 20140501, end: 20140501

REACTIONS (2)
  - Drug effect decreased [None]
  - Product quality issue [None]
